FAERS Safety Report 13747812 (Version 1)
Quarter: 2017Q3

REPORT INFORMATION
  Report Type: Spontaneous
  Country: GH (occurrence: GH)
  Receive Date: 20170713
  Receipt Date: 20170713
  Transmission Date: 20171127
  Serious: Yes (Death)
  Sender: FDA-Public Use
  Company Number: GH-ROCHE-1962719

PATIENT
  Age: 63 Year
  Sex: Female

DRUGS (1)
  1. XELODA [Suspect]
     Active Substance: CAPECITABINE
     Indication: BREAST CANCER
     Route: 065

REACTIONS (1)
  - Death [Fatal]
